FAERS Safety Report 5903230-2 (Version None)
Quarter: 2008Q3

REPORT INFORMATION
  Report Type: 
  Country: None (occurrence: None)
  Receive Date: 20080926
  Receipt Date: 20080916
  Transmission Date: 20090109
  Serious: Yes (Hospitalization)
  Sender: FDA-Public Use
  Company Number: GXKR2008CA08959

PATIENT
  Age: 61 Year
  Sex: Male
  Weight: 104 kg

DRUGS (30)
  1. NITROGLYCERIN [Suspect]
     Indication: BLOOD PRESSURE INCREASED
     Dosage: INTRAVENOUS
     Route: 042
     Dates: start: 20080827, end: 20080827
  2. PROTAMINE SULFATE [Suspect]
     Indication: HEPARIN NEUTRALISATION THERAPY
     Dosage: 500 MG, INTRAVENOUS
     Route: 042
     Dates: start: 20080827, end: 20080827
  3. TRANEXAMIC ACID INJ BP (NGX) (TRANEXAMIC ACID) UNKNOWN [Suspect]
     Indication: HAEMORRHAGE PROPHYLAXIS
     Dosage: 8 G, INTRAVENOUS
     Route: 042
     Dates: start: 20080827, end: 20080827
  4. MAGNESIUM SULFATE [Suspect]
     Indication: ELECTROLYTE SUBSTITUTION THERAPY
     Dosage: 5 G, INTRAVENOUS
     Route: 042
     Dates: start: 20080827, end: 20080827
  5. HEPARIN [Suspect]
     Dosage: 45000 IU/DAY, INTRAVENOUS
     Route: 042
  6. FENTANYL-100 [Concomitant]
  7. MANNITOL [Concomitant]
  8. DIAZEPAM [Concomitant]
  9. PANCURONIUM [Concomitant]
  10. MIDAZOLAM HCL [Concomitant]
  11. ROCURONIUM BROMIDE [Concomitant]
  12. EPINEPHRINE [Concomitant]
  13. MORPHINE [Concomitant]
  14. PROPOFOL [Concomitant]
  15. SEVOFLURANE [Concomitant]
  16. SODIUM BICARBONATE IN PLASTIC CONTAINER [Concomitant]
  17. CEFAZOLIN [Concomitant]
  18. GLYCOPYRROLATE [Concomitant]
  19. INSULIN (INSULIN) [Concomitant]
  20. LIDOCAINE [Concomitant]
  21. METOPROLOL TARTRATE [Concomitant]
  22. METHYPREDNISOLONE (METHYLPREDNISOLONE) [Concomitant]
  23. VOLUVEN (HETASTARCH) [Concomitant]
  24. NEOSYNEPHREX (EPINEPHRINE) [Concomitant]
  25. EDHEDRINE (EPHEDRINE) [Concomitant]
  26. BACITRACIN [Concomitant]
  27. PROTAMINE SULFATE [Suspect]
  28. PROTAMINE SULFATE [Suspect]
  29. TRANEXAMIC ACID INJ BP (NGX) (TRANEXAMIC ACID) UNKNOWN [Suspect]
  30. MAGNESIUM SULFATE [Suspect]

REACTIONS (1)
  - GRAND MAL CONVULSION [None]
